FAERS Safety Report 12293237 (Version 10)
Quarter: 2017Q3

REPORT INFORMATION
  Report Type: Report from Study
  Country: US (occurrence: US)
  Receive Date: 20160421
  Receipt Date: 20170920
  Transmission Date: 20171127
  Serious: Yes (Hospitalization, Other)
  Sender: FDA-Public Use
  Company Number: US-ACTELION-A-NJ2016-134793

PATIENT
  Age: 59 Year
  Sex: Female

DRUGS (6)
  1. TRACLEER [Suspect]
     Active Substance: BOSENTAN
     Dosage: 125 MG, BID
     Route: 048
     Dates: end: 20170502
  2. AMLODIPINE [Concomitant]
     Active Substance: AMLODIPINE BESYLATE
  3. VITAMIN B12 [Concomitant]
     Active Substance: CYANOCOBALAMIN
  4. HUMIRA [Concomitant]
     Active Substance: ADALIMUMAB
  5. TRACLEER [Suspect]
     Active Substance: BOSENTAN
     Indication: PULMONARY ARTERIAL HYPERTENSION
     Dosage: 125 MG, BID
     Route: 048
     Dates: start: 20120725
  6. OXYGEN. [Concomitant]
     Active Substance: OXYGEN

REACTIONS (36)
  - Transfusion [Unknown]
  - Dyspnoea [Unknown]
  - Poor peripheral circulation [Unknown]
  - Hypotension [Unknown]
  - Heart rate increased [Unknown]
  - Balance disorder [Unknown]
  - Laceration [Unknown]
  - Contusion [Unknown]
  - Dizziness [Unknown]
  - Feeding disorder [Unknown]
  - Anxiety [Unknown]
  - Nausea [Unknown]
  - Dyspnoea exertional [Unknown]
  - Hypertension [Unknown]
  - Oesophageal operation [Unknown]
  - Pneumonia [Unknown]
  - Haemorrhage [Unknown]
  - Insomnia [Unknown]
  - Blood urea increased [Unknown]
  - Swelling [Unknown]
  - Syncope [Unknown]
  - Crohn^s disease [Unknown]
  - Fall [Unknown]
  - Pain in extremity [Unknown]
  - Condition aggravated [Unknown]
  - Blood creatinine increased [Unknown]
  - Loss of consciousness [Unknown]
  - Anaemia [Not Recovered/Not Resolved]
  - Heart rate irregular [Unknown]
  - Vitamin B12 deficiency [Unknown]
  - Fluid retention [Unknown]
  - Headache [Unknown]
  - Limb injury [Unknown]
  - Blood pressure systolic increased [Unknown]
  - Weight decreased [Unknown]
  - Cyanosis [Unknown]
